FAERS Safety Report 5686317-1 (Version None)
Quarter: 2008Q1

REPORT INFORMATION
  Report Type: 
  Country: None (occurrence: None)
  Receive Date: 20080328
  Receipt Date: 20070705
  Transmission Date: 20080703
  Serious: No
  Sender: FDA-Public Use
  Company Number: US-BAYER-US-2007-025037

PATIENT
  Age: 28 Year
  Sex: Female

DRUGS (6)
  1. MIRENA [Suspect]
     Indication: CONTRACEPTION
     Route: 015
     Dates: start: 20070424
  2. LANTUS [Concomitant]
  3. HUMALOG [Concomitant]
  4. LISINOPRIL [Concomitant]
  5. OMACOR [Concomitant]
  6. FISH OIL [Concomitant]

REACTIONS (2)
  - ALOPECIA [None]
  - POST PROCEDURAL HAEMORRHAGE [None]
